FAERS Safety Report 5897549-1 (Version None)
Quarter: 2008Q3

REPORT INFORMATION
  Report Type: 
  Country: None (occurrence: None)
  Receive Date: 20080916
  Receipt Date: 20080414
  Transmission Date: 20090109
  Serious: Yes (Hospitalization)
  Sender: FDA-Public Use
  Company Number: S08-USA-01457-01

PATIENT
  Age: 23 Year
  Sex: Female

DRUGS (5)
  1. CELEXA [Suspect]
     Indication: DEPRESSION
     Dosage: 60 MG (60 MG,ONCE),ORAL
     Route: 049
     Dates: start: 20030926, end: 20030926
  2. CELEXA [Suspect]
     Indication: DEPRESSION
     Dosage: 20 MG (20 MG,ONCE A DAY),ORAL
     Route: 048
     Dates: end: 20030901
  3. BENADRYL [Suspect]
     Indication: SUICIDE ATTEMPT
     Dosage: 10 DOSAGE FORMS (10 DOSAGE FORMS, ONCE)
     Dates: start: 20030926, end: 20030926
  4. EXCEDRIN PM(ACETAMINOPHEN WITH DIPHENHYDRAMINE) [Suspect]
     Indication: SUICIDE ATTEMPT
     Dosage: 10 DOSAGE FORMS (10 DOSAGE FORMS,ONCE)
     Dates: start: 20030926, end: 20030926
  5. ALCOHOL (ALCOHOL) [Suspect]
     Indication: SUICIDE ATTEMPT
     Dates: start: 20030926, end: 20030926

REACTIONS (4)
  - INFUSION SITE ERYTHEMA [None]
  - MAJOR DEPRESSION [None]
  - MULTIPLE DRUG OVERDOSE INTENTIONAL [None]
  - SUICIDE ATTEMPT [None]
